FAERS Safety Report 12138794 (Version 1)
Quarter: 2016Q1

REPORT INFORMATION
  Report Type: Spontaneous
  Country: GB (occurrence: GB)
  Receive Date: 20160302
  Receipt Date: 20160302
  Transmission Date: 20160526
  Serious: Yes (Death, Hospitalization, Other)
  Sender: FDA-Public Use
  Company Number: GB-GLAXOSMITHKLINE-GB2016GSK030317

PATIENT
  Sex: Male

DRUGS (5)
  1. ROPINIROLE. [Suspect]
     Active Substance: ROPINIROLE
     Indication: PARKINSON^S DISEASE
     Dosage: UNK
     Route: 065
  2. LEVODOPA [Suspect]
     Active Substance: LEVODOPA
     Indication: PARKINSON^S DISEASE
     Dosage: UNK
     Route: 065
  3. CABERGOLINE. [Suspect]
     Active Substance: CABERGOLINE
     Indication: PARKINSON^S DISEASE
     Dosage: UP TO 4 MG/DAY
  4. PRAMIPEXOLE. [Suspect]
     Active Substance: PRAMIPEXOLE
     Indication: PARKINSON^S DISEASE
     Dosage: UNK
     Route: 065
  5. PERGOLIDE [Suspect]
     Active Substance: PERGOLIDE
     Indication: PARKINSON^S DISEASE
     Dosage: UNK
     Route: 065

REACTIONS (21)
  - Disinhibition [Unknown]
  - Hallucination [Unknown]
  - Pain [Unknown]
  - Eating disorder [Unknown]
  - Drug abuse [Unknown]
  - Death [Fatal]
  - Sexually inappropriate behaviour [Unknown]
  - Drug dependence [Unknown]
  - Gambling disorder [Unknown]
  - Drug withdrawal syndrome [Unknown]
  - Dyskinesia [Recovering/Resolving]
  - Depression [Unknown]
  - Anxiety [Unknown]
  - Fatigue [Unknown]
  - Impulse-control disorder [Unknown]
  - Stereotypy [Unknown]
  - Dysphoria [Unknown]
  - Compulsive shopping [Unknown]
  - Hypersexuality [Recovering/Resolving]
  - Compulsive hoarding [Unknown]
  - Paraphilia [Unknown]

NARRATIVE: CASE EVENT DATE: 2015
